FAERS Safety Report 9509953 (Version 1)
Quarter: 2013Q3

REPORT INFORMATION
  Report Type: Spontaneous
  Country: US (occurrence: US)
  Receive Date: 20130909
  Receipt Date: 20130909
  Transmission Date: 20140515
  Serious: No
  Sender: FDA-Public Use
  Company Number: US-BRISTOL-MYERS SQUIBB COMPANY-18789453

PATIENT
  Age: 47 Year
  Sex: Female

DRUGS (3)
  1. ABILIFY [Suspect]
     Dosage: AT BEDTIME
     Dates: start: 201109
  2. VITAMINS [Concomitant]
  3. PROZAC [Concomitant]

REACTIONS (1)
  - Rotator cuff syndrome [Unknown]
